FAERS Safety Report 20789487 (Version 7)
Quarter: 2022Q4

REPORT INFORMATION
  Report Type: Other
  Country: JP (occurrence: JP)
  Receive Date: 20220505
  Receipt Date: 20221030
  Transmission Date: 20230113
  Serious: Yes (Hospitalization, Other)
  Sender: FDA-Public Use
  Company Number: JP-CHUGAI-2021025128

PATIENT
  Age: 59 Year
  Sex: Female
  Weight: 55.5 kg

DRUGS (11)
  1. ATEZOLIZUMAB [Suspect]
     Active Substance: ATEZOLIZUMAB
     Indication: Lung adenocarcinoma
     Route: 041
     Dates: start: 20211005, end: 20211207
  2. ATEZOLIZUMAB [Suspect]
     Active Substance: ATEZOLIZUMAB
     Dosage: 1200 MILLIGRAM, ONCE/3WEEKS
     Route: 041
     Dates: start: 20220105, end: 20220126
  3. ATEZOLIZUMAB [Suspect]
     Active Substance: ATEZOLIZUMAB
     Dosage: 1200 MILLIGRAM, ONCE/3WEEKS
     Route: 041
     Dates: start: 20220221, end: 20220314
  4. BEVACIZUMAB [Suspect]
     Active Substance: BEVACIZUMAB
     Indication: Lung adenocarcinoma
     Dosage: 830 MILLIGRAM, ONCE/3WEEKS
     Route: 041
     Dates: start: 20211005, end: 20211207
  5. BEVACIZUMAB [Suspect]
     Active Substance: BEVACIZUMAB
     Dosage: 780 MILLIGRAM, QD
     Route: 041
     Dates: start: 20220105, end: 20220105
  6. BEVACIZUMAB [Suspect]
     Active Substance: BEVACIZUMAB
     Dosage: 780 MG, ONCE/3WEEKS
     Route: 041
     Dates: start: 20220221, end: 20220314
  7. CARBOPLATIN [Suspect]
     Active Substance: CARBOPLATIN
     Indication: Lung adenocarcinoma
     Route: 041
     Dates: start: 20211005, end: 20211005
  8. CARBOPLATIN [Suspect]
     Active Substance: CARBOPLATIN
     Dosage: 520 MILLIGRAM?MOST RECENT DOSE RECEIVED ON 07/DEC/2021
     Route: 041
     Dates: start: 20211026
  9. PACLITAXEL [Suspect]
     Active Substance: PACLITAXEL
     Indication: Lung adenocarcinoma
     Dosage: 260 MILLIGRAM
     Route: 041
     Dates: start: 20211005, end: 20211005
  10. PACLITAXEL [Suspect]
     Active Substance: PACLITAXEL
     Dosage: 260 MILLIGRAM?MOST RECENT DOSE RECEIVED ON 07/DEC/2021.
     Route: 041
     Dates: start: 20211026
  11. LOXOPROFEN SODIUM [Suspect]
     Active Substance: LOXOPROFEN SODIUM
     Indication: Product used for unknown indication
     Route: 065

REACTIONS (12)
  - Duodenal stenosis [Unknown]
  - Acute kidney injury [Recovering/Resolving]
  - Embolism [Recovering/Resolving]
  - Decreased appetite [Recovered/Resolved]
  - Anaemia [Recovering/Resolving]
  - White blood cell count decreased [Recovering/Resolving]
  - Neutrophil count decreased [Recovered/Resolved]
  - Neuropathy peripheral [Not Recovered/Not Resolved]
  - Proteinuria [Recovered/Resolved]
  - Malaise [Recovered/Resolved]
  - Platelet count decreased [Recovering/Resolving]
  - Myalgia [Recovered/Resolved]

NARRATIVE: CASE EVENT DATE: 20211008
